FAERS Safety Report 4568901-1 (Version None)
Quarter: 2005Q1

REPORT INFORMATION
  Report Type: 
  Country: None (occurrence: None)
  Receive Date: 20050203
  Receipt Date: 20050124
  Transmission Date: 20050727
  Serious: Yes (Death)
  Sender: FDA-Public Use
  Company Number: US-JNJFOC-20041205656

PATIENT
  Sex: Male
  Weight: 58.97 kg

DRUGS (1)
  1. REMICADE [Suspect]
     Indication: CROHN'S DISEASE
     Route: 042

REACTIONS (3)
  - NEOPLASM MALIGNANT [None]
  - PULMONARY EMBOLISM [None]
  - SURGERY [None]
